FAERS Safety Report 25040943 (Version 1)
Quarter: 2025Q1

REPORT INFORMATION
  Report Type: Report from Study
  Country: US (occurrence: US)
  Receive Date: 20250305
  Receipt Date: 20250305
  Transmission Date: 20250408
  Serious: Yes (Death, Other)
  Sender: ACADIA PHARMACEUTICALS
  Company Number: US-ACADIA PHARMACEUTICALS INC.-ACA-2025-PIM-002353

PATIENT
  Age: 90 Year
  Sex: Male

DRUGS (26)
  1. NUPLAZID [Suspect]
     Active Substance: PIMAVANSERIN TARTRATE
     Indication: Parkinson^s disease
     Dosage: 34 MILLIGRAM, QD
     Route: 048
     Dates: start: 20240206, end: 20250216
  2. CARBIDOPA\LEVODOPA [Concomitant]
     Active Substance: CARBIDOPA\LEVODOPA
  3. VITAMIN D3 [Concomitant]
     Active Substance: CHOLECALCIFEROL
  4. VITAMIN D3 [Concomitant]
     Active Substance: CHOLECALCIFEROL
  5. DICLOFENAC DIETHYLAMINE [Concomitant]
     Active Substance: DICLOFENAC DIETHYLAMINE
  6. BENTYL [Concomitant]
     Active Substance: DICYCLOMINE HYDROCHLORIDE
  7. PROSCAR [Concomitant]
     Active Substance: FINASTERIDE
  8. HYDROCHLOROTHIAZIDE [Concomitant]
     Active Substance: HYDROCHLOROTHIAZIDE
  9. ZESTRIL [Concomitant]
     Active Substance: LISINOPRIL
  10. MAGNESIUM OXIDE [Concomitant]
     Active Substance: MAGNESIUM OXIDE
  11. MYRBETRIQ [Concomitant]
     Active Substance: MIRABEGRON
  12. PRILOSEC [Concomitant]
     Active Substance: OMEPRAZOLE MAGNESIUM
  13. POTASSIUM CHLORIDE [Concomitant]
     Active Substance: POTASSIUM CHLORIDE
  14. ROPINIROLE [Concomitant]
     Active Substance: ROPINIROLE
  15. SODIUM CHLORIDE [Concomitant]
     Active Substance: SODIUM CHLORIDE
  16. TAMSULOSIN [Concomitant]
     Active Substance: TAMSULOSIN
  17. TURMERIC COMPLEX [Concomitant]
  18. TRAMADOL [Concomitant]
     Active Substance: TRAMADOL
  19. MELATONIN [Concomitant]
     Active Substance: MELATONIN
  20. AMLODIPINE [Concomitant]
     Active Substance: AMLODIPINE BESYLATE
  21. DICYCLOMINE [Concomitant]
     Active Substance: DICYCLOMINE HYDROCHLORIDE
  22. ASPIRIN [Concomitant]
     Active Substance: ASPIRIN
  23. COLACE [Concomitant]
     Active Substance: DOCUSATE SODIUM
  24. DONEPEZIL [Concomitant]
     Active Substance: DONEPEZIL
  25. ATIVAN [Concomitant]
     Active Substance: LORAZEPAM
  26. ATORVASTATIN [Concomitant]
     Active Substance: ATORVASTATIN

REACTIONS (1)
  - Death [Fatal]

NARRATIVE: CASE EVENT DATE: 20250216
